FAERS Safety Report 13876956 (Version 1)
Quarter: 2017Q3

REPORT INFORMATION
  Report Type: Spontaneous
  Country: US (occurrence: US)
  Receive Date: 20170817
  Receipt Date: 20170817
  Transmission Date: 20171127
  Serious: No
  Sender: FDA-Public Use
  Company Number: US-ASTRAZENECA-2017SE82689

PATIENT

DRUGS (2)
  1. CRESTOR [Suspect]
     Active Substance: ROSUVASTATIN CALCIUM
     Dosage: UNKNOWN
     Route: 048
  2. ZETIA [Concomitant]
     Active Substance: EZETIMIBE

REACTIONS (3)
  - Glucose tolerance impaired [Unknown]
  - Blood cholesterol increased [Unknown]
  - Heart rate decreased [Unknown]
